FAERS Safety Report 7962188-5 (Version None)
Quarter: 2011Q4

REPORT INFORMATION
  Report Type: 
  Country: None (occurrence: None)
  Receive Date: 20111207
  Receipt Date: 20111125
  Transmission Date: 20120403
  Serious: Yes (Other)
  Sender: FDA-Public Use
  Company Number: PHHY2011AR104564

PATIENT
  Sex: Female

DRUGS (1)
  1. GLEEVEC [Suspect]
     Indication: CHRONIC MYELOID LEUKAEMIA
     Dosage: 400 MG DAILY
     Route: 048
     Dates: start: 20100201

REACTIONS (5)
  - DIABETES MELLITUS [None]
  - CARDIAC DISORDER [None]
  - HYPOTHYROIDISM [None]
  - CONCOMITANT DISEASE PROGRESSION [None]
  - VISUAL IMPAIRMENT [None]
